FAERS Safety Report 17111981 (Version 1)
Quarter: 2019Q4

REPORT INFORMATION
  Report Type: Spontaneous
  Country: US (occurrence: US)
  Receive Date: 20191204
  Receipt Date: 20191204
  Transmission Date: 20200122
  Serious: Yes (Death)
  Sender: FDA-Public Use
  Company Number: US-MYLANLABS-2019M1118586

PATIENT
  Age: 65 Year
  Sex: Female

DRUGS (1)
  1. METRONIDAZOLE. [Suspect]
     Active Substance: METRONIDAZOLE
     Indication: CHOLECYSTITIS INFECTIVE
     Dosage: 1.5 GRAM, QD
     Route: 042

REACTIONS (1)
  - Toxic encephalopathy [Fatal]
